FAERS Safety Report 24097061 (Version 2)
Quarter: 2025Q2

REPORT INFORMATION
  Report Type: Spontaneous
  Country: US (occurrence: US)
  Receive Date: 20240716
  Receipt Date: 20250514
  Transmission Date: 20250716
  Serious: No
  Sender: EVOFEM
  Company Number: US-EVOFEM BIOSCIENCES, INC.-2024-EVO-US000016

PATIENT

DRUGS (1)
  1. PHEXXI [Suspect]
     Active Substance: CITRIC ACID MONOHYDRATE\LACTIC ACID, L-\POTASSIUM BITARTRATE
     Indication: Product used for unknown indication
     Dates: start: 20240225

REACTIONS (1)
  - Expired product administered [Unknown]

NARRATIVE: CASE EVENT DATE: 20240225
